FAERS Safety Report 24051683 (Version 1)
Quarter: 2024Q3

REPORT INFORMATION
  Report Type: Spontaneous
  Country: IT (occurrence: None)
  Receive Date: 20240704
  Receipt Date: 20240704
  Transmission Date: 20241016
  Serious: Yes (Hospitalization)
  Sender: ASTRAZENECA
  Company Number: 2024A153670

PATIENT
  Age: 89 Year
  Sex: Female

DRUGS (8)
  1. QUETIAPINE [Interacting]
     Active Substance: QUETIAPINE
     Indication: Agitation
     Route: 048
     Dates: start: 20240508, end: 20240529
  2. TRAZODONE [Interacting]
     Active Substance: TRAZODONE HYDROCHLORIDE
     Indication: Agitation
     Dosage: 15 DROPS PER DAY
     Route: 048
     Dates: start: 20240508, end: 20240606
  3. CYMBALTA [Concomitant]
     Active Substance: DULOXETINE HYDROCHLORIDE
     Dosage: 1 TABLET 60 MG AT 8 AM
     Route: 048
  4. ATENOLOL [Concomitant]
     Active Substance: ATENOLOL
     Dosage: 100 MG 1/2 TABLET IN THE EVENING
     Route: 048
  5. COUMADIN [Concomitant]
     Active Substance: WARFARIN SODIUM
     Dosage: 5 MG ACCORDING TO INR. SCHEME
     Route: 048
  6. CHOLECALCIFEROL [Concomitant]
     Active Substance: CHOLECALCIFEROL
     Dosage: 35 DROPS IN 1 WEEK; 10.000 IU 35 DROPS ON SUNDAYS
     Route: 048
  7. OLMESARTAN MEDOXOMIL [Concomitant]
     Active Substance: OLMESARTAN MEDOXOMIL
     Indication: Hypertension
     Dosage: 20 MG 1/2 TABLET IN THE MORNING
     Route: 048
  8. CARBIDOPA\LEVODOPA [Concomitant]
     Active Substance: CARBIDOPA\LEVODOPA
     Indication: Parkinsonism
     Dosage: 100/25/200 MG 9-11-15-18 HOURS
     Route: 048

REACTIONS (3)
  - Sopor [Recovering/Resolving]
  - Escherichia urinary tract infection [Unknown]
  - Drug interaction [Recovering/Resolving]

NARRATIVE: CASE EVENT DATE: 20240529
